FAERS Safety Report 5469277-8 (Version None)
Quarter: 2007Q3

REPORT INFORMATION
  Report Type: 
  Country: None (occurrence: None)
  Receive Date: 20070926
  Receipt Date: 20070926
  Transmission Date: 20080115
  Serious: Yes (Life-Threatening)
  Sender: FDA-Public Use
  Company Number: None

PATIENT
  Age: 49 Year
  Sex: Female

DRUGS (1)
  1. ADVAIR DISKUS 250/50 [Suspect]
     Indication: ASTHMA
     Dosage: 1 PUFF 2X DAILY  INHAL
     Route: 055
     Dates: start: 20010630, end: 20070924

REACTIONS (2)
  - ASTHMA [None]
  - DRUG DEPENDENCE [None]
